FAERS Safety Report 26055257 (Version 2)
Quarter: 2025Q4

REPORT INFORMATION
  Report Type: Spontaneous
  Country: JP (occurrence: JP)
  Receive Date: 20251117
  Receipt Date: 20251121
  Transmission Date: 20260118
  Serious: Yes (Life-Threatening, Other)
  Sender: PFIZER
  Company Number: JP-MLMSERVICE-20251105-PI702587-00101-1

PATIENT
  Age: 65 Year
  Sex: Male

DRUGS (6)
  1. GEMCITABINE HYDROCHLORIDE [Suspect]
     Active Substance: GEMCITABINE HYDROCHLORIDE
     Indication: Malignant neoplasm of ampulla of Vater
     Dosage: 1000 MG/M2, CYCLIC (DAYS 1 AND 8 IN A 21-DAY CYCLE (3 CYCLES))
  2. GEMCITABINE HYDROCHLORIDE [Suspect]
     Active Substance: GEMCITABINE HYDROCHLORIDE
     Indication: Metastases to lymph nodes
     Dosage: 500 MG/M2, CYCLIC (DAYS 1 AND 15 IN A 21-DAY CYCLE (3 CYCLES))
  3. CISPLATIN [Suspect]
     Active Substance: CISPLATIN
     Indication: Malignant neoplasm of ampulla of Vater
     Dosage: 25 MG/M2, CYCLIC (DAYS 1 AND 8 IN A 21-DAY CYCLE (3 CYCLES))
  4. CISPLATIN [Suspect]
     Active Substance: CISPLATIN
     Indication: Metastases to lymph nodes
     Dosage: 12.5 MG/M2, CYCLIC (DAYS 1 AND 15 IN A 21-DAY CYCLE (3 CYCLES))
  5. DURVALUMAB [Concomitant]
     Active Substance: DURVALUMAB
     Indication: Malignant neoplasm of ampulla of Vater
     Dosage: 1500 MG/M2, CYCLIC (DAY 1 IN A 21-DAY CYCLE)
  6. DURVALUMAB [Concomitant]
     Active Substance: DURVALUMAB
     Indication: Metastases to lymph nodes

REACTIONS (3)
  - Neutropenia [Unknown]
  - Off label use [Unknown]
  - Drug effective for unapproved indication [Unknown]
